FAERS Safety Report 10021723 (Version 2)
Quarter: 2014Q1

REPORT INFORMATION
  Report Type: Spontaneous
  Country: US (occurrence: US)
  Receive Date: 20140319
  Receipt Date: 20140327
  Transmission Date: 20141002
  Serious: Yes (Hospitalization, Other)
  Sender: FDA-Public Use
  Company Number: US-BAXTER-2014BAX012108

PATIENT
  Age: 15 Year
  Sex: Male
  Weight: 47.8 kg

DRUGS (10)
  1. DIANEAL PD2 [Suspect]
     Indication: RENAL FAILURE CHRONIC
     Dosage: 1600 ML
     Route: 033
     Dates: start: 20121210
  2. DIANEAL PD2 [Suspect]
     Indication: PERITONEAL DIALYSIS
  3. AMLODIPINE [Concomitant]
     Indication: PRODUCT USED FOR UNKNOWN INDICATION
     Route: 065
  4. CALCIUM CARBONATE [Concomitant]
     Indication: PRODUCT USED FOR UNKNOWN INDICATION
     Route: 065
  5. LASIX [Concomitant]
     Indication: PRODUCT USED FOR UNKNOWN INDICATION
     Route: 065
  6. NEPHROCAPS [Concomitant]
     Indication: PRODUCT USED FOR UNKNOWN INDICATION
     Route: 065
  7. FOLTX [Concomitant]
     Indication: PRODUCT USED FOR UNKNOWN INDICATION
     Route: 065
  8. BACTROBAN [Concomitant]
     Indication: PRODUCT USED FOR UNKNOWN INDICATION
     Route: 065
  9. MIRALAX [Concomitant]
     Indication: PRODUCT USED FOR UNKNOWN INDICATION
     Route: 065
  10. RENVELA [Concomitant]
     Indication: PRODUCT USED FOR UNKNOWN INDICATION
     Route: 065

REACTIONS (5)
  - Peritonitis bacterial [Not Recovered/Not Resolved]
  - Peritonitis [Not Recovered/Not Resolved]
  - Cough [Unknown]
  - Weight decreased [Unknown]
  - Malaise [Unknown]
